FAERS Safety Report 6033066-6 (Version None)
Quarter: 2009Q1

REPORT INFORMATION
  Report Type: 
  Country: None (occurrence: None)
  Receive Date: 20090107
  Receipt Date: 20081231
  Transmission Date: 20090719
  Serious: Yes (Hospitalization)
  Sender: FDA-Public Use
  Company Number: APP200801252

PATIENT
  Sex: 0

DRUGS (13)
  1. HEPARIN SODIUM INJECTION [Suspect]
     Indication: ANTICOAGULANT THERAPY
     Dosage: 5000 USP UNITS, PER CENTRAL LINE DUAL LUMEN
     Dates: start: 20081209, end: 20081219
  2. HEPARIN SODIUM INJECTION [Suspect]
     Indication: HAEMODIALYSIS
     Dosage: 5000 USP UNITS, PER CENTRAL LINE DUAL LUMEN
     Dates: start: 20081209, end: 20081219
  3. HEPARIN SODIUM INJECTION [Suspect]
     Indication: HAEMODIALYSIS
     Dosage: 2000 USP UNITS, INTRAVENOUS  BOLUS, 1000 USP UNITS,  HOURLY DURING 2 HR 45 MIN HEMODIALYSIS
     Route: 040
     Dates: start: 20081209, end: 20081219
  4. HEPARIN SODIUM INJECTION [Suspect]
     Indication: HAEMODIALYSIS
     Dosage: 2000 USP UNITS, INTRAVENOUS  BOLUS, 1000 USP UNITS,  HOURLY DURING 2 HR 45 MIN HEMODIALYSIS
     Route: 040
     Dates: start: 20081209, end: 20081219
  5. RECOMBIVAX (HEPATITIS B VACCINE) [Concomitant]
  6. GLIPIZIDE ER (GLIPIZIDE) [Concomitant]
  7. DOCUSATE CALCIUM (DOCUSATE CALCIUM) [Concomitant]
  8. AMLODIPINE [Concomitant]
  9. LEVOTHYROXINE SODIUM [Concomitant]
  10. QUINALAPRIL [Concomitant]
  11. SIMVASTATIN [Concomitant]
  12. METOPROLOL TARTRATE [Concomitant]
  13. PHOSLO [Concomitant]

REACTIONS (2)
  - HAEMATOMA [None]
  - PROTHROMBIN TIME PROLONGED [None]
